FAERS Safety Report 16570473 (Version 1)
Quarter: 2019Q3

REPORT INFORMATION
  Report Type: Spontaneous
  Country: US (occurrence: US)
  Receive Date: 20190715
  Receipt Date: 20190715
  Transmission Date: 20191004
  Serious: No
  Sender: FDA-Public Use
  Company Number: US-ELI_LILLY_AND_COMPANY-US201907006714

PATIENT
  Sex: Female

DRUGS (1)
  1. VERZENIO [Suspect]
     Active Substance: ABEMACICLIB
     Indication: BREAST CANCER FEMALE
     Dosage: 150 MG, BID
     Route: 065
     Dates: start: 20190523

REACTIONS (15)
  - Blood glucose decreased [Unknown]
  - Hyperhidrosis [Unknown]
  - Depression [Unknown]
  - Oedema [Unknown]
  - Pyrexia [Unknown]
  - Asthenia [Unknown]
  - Emotional disorder [Unknown]
  - Decreased activity [Unknown]
  - Sinus disorder [Unknown]
  - Hypoacusis [Unknown]
  - Diarrhoea [Unknown]
  - Chills [Unknown]
  - Palpitations [Unknown]
  - Tinnitus [Unknown]
  - Fatigue [Unknown]
